FAERS Safety Report 6285771-4 (Version None)
Quarter: 2009Q3

REPORT INFORMATION
  Report Type: 
  Country: None (occurrence: None)
  Receive Date: 20090724
  Receipt Date: 20090714
  Transmission Date: 20100115
  Serious: Yes (Hospitalization, Other)
  Sender: FDA-Public Use
  Company Number: 2009S1005689

PATIENT
  Age: 54 Year
  Sex: Male
  Weight: 134.2647 kg

DRUGS (4)
  1. PHOSPHOSODA FLAVOR NOT SPECIFIED [Suspect]
     Indication: SURGERY
     Dosage: 45 ML; TOTAL; PO
     Route: 048
     Dates: start: 20060101, end: 20060101
  2. FLEET ENEMA (SODIUM PHOSPHATE) [Suspect]
     Indication: SURGERY
     Dosage: 133 ML; X1; RTL
     Dates: start: 20060101, end: 20060101
  3. COD LIVER OIL [Concomitant]
  4. VITAMINS D /00107901/ [Concomitant]

REACTIONS (1)
  - RENAL FAILURE [None]
